FAERS Safety Report 9030733 (Version 8)
Quarter: 2014Q3

REPORT INFORMATION
  Report Type: Report from Study
  Country: FR (occurrence: FR)
  Receive Date: 20130123
  Receipt Date: 20140804
  Transmission Date: 20150326
  Serious: Yes (Hospitalization)
  Sender: FDA-Public Use
  Company Number: FR-ROCHE-1161240

PATIENT
  Age: 53 Year
  Sex: Male
  Weight: 86.7 kg

DRUGS (10)
  1. ZYLORIC [Concomitant]
     Active Substance: ALLOPURINOL
     Indication: PROPHYLAXIS
     Route: 065
     Dates: start: 20121213, end: 20130313
  2. ZELITREX [Concomitant]
     Active Substance: VALACYCLOVIR HYDROCHLORIDE
     Indication: PROPHYLAXIS
     Route: 065
     Dates: start: 20121213
  3. CORVASAL (FRANCE) [Concomitant]
     Indication: PROPHYLAXIS
     Route: 065
     Dates: start: 20121213
  4. TOPALGIC LP [Concomitant]
     Active Substance: TRAMADOL
     Indication: PYREXIA
     Route: 065
     Dates: start: 20121213, end: 20121228
  5. AUGMENTIN [Concomitant]
     Active Substance: AMOXICILLIN\CLAVULANATE POTASSIUM
     Dosage: 1 G/125
     Route: 065
     Dates: start: 20121213, end: 20121219
  6. ZARZIO [Concomitant]
     Active Substance: FILGRASTIM
     Indication: NEUTROPENIA
     Route: 065
     Dates: start: 20121207, end: 20121210
  7. PROZAC [Concomitant]
     Active Substance: FLUOXETINE HYDROCHLORIDE
     Route: 065
     Dates: start: 20121213
  8. RECTOGESIC (FRANCE) [Concomitant]
     Indication: ANAL FISSURE
     Route: 065
     Dates: start: 20121213, end: 20130113
  9. RITUXIMAB [Suspect]
     Active Substance: RITUXIMAB
     Indication: CHRONIC LYMPHOCYTIC LEUKAEMIA
     Route: 042
     Dates: start: 20121126
  10. DAFALGAN CODEINE [Concomitant]
     Active Substance: ACETAMINOPHEN\CODEINE PHOSPHATE
     Indication: ISCHAEMIA

REACTIONS (2)
  - Hypoxia [Recovered/Resolved]
  - Anal ulcer [Recovered/Resolved]

NARRATIVE: CASE EVENT DATE: 20121126
